FAERS Safety Report 12956709 (Version 1)
Quarter: 2016Q4

REPORT INFORMATION
  Report Type: Spontaneous
  Country: DE (occurrence: DE)
  Receive Date: 20161119
  Receipt Date: 20161119
  Transmission Date: 20170207
  Serious: Yes (Hospitalization)
  Sender: FDA-Public Use
  Company Number: DE-ASTRAZENECA-2016SF19517

PATIENT
  Sex: Female

DRUGS (4)
  1. ACEMETHACIN [Concomitant]
     Dosage: AS REQUIRED
  2. ARIMIDEX [Suspect]
     Active Substance: ANASTROZOLE
     Route: 048
  3. BELOC ZOK [Concomitant]
     Active Substance: METOPROLOL SUCCINATE
     Dosage: HALF TABLET PER DAY
  4. INDOMETACIN [Concomitant]
     Active Substance: INDOMETHACIN

REACTIONS (14)
  - Musculoskeletal pain [Unknown]
  - Hypophagia [Unknown]
  - Bone cyst [Unknown]
  - Spinal osteoarthritis [Unknown]
  - Intervertebral disc protrusion [Unknown]
  - Headache [Unknown]
  - Back pain [Unknown]
  - Osteochondrosis [Unknown]
  - Osteopenia [Unknown]
  - Hypertension [Unknown]
  - Depressed mood [Unknown]
  - Nausea [Unknown]
  - Arthralgia [Unknown]
  - Neck pain [Unknown]
